FAERS Safety Report 17871543 (Version 1)
Quarter: 2020Q2

REPORT INFORMATION
  Report Type: Report from Study
  Country: FR (occurrence: FR)
  Receive Date: 20200608
  Receipt Date: 20200608
  Transmission Date: 20200714
  Serious: Yes (Other)
  Sender: FDA-Public Use
  Company Number: FR-ROCHE-2614003

PATIENT
  Sex: Male

DRUGS (4)
  1. RITUXIMAB. [Suspect]
     Active Substance: RITUXIMAB
     Indication: VON WILLEBRAND^S DISEASE
     Route: 065
  2. CYCLOPHOSPHAMIDE. [Suspect]
     Active Substance: CYCLOPHOSPHAMIDE
     Indication: VON WILLEBRAND^S DISEASE
     Route: 065
  3. METHYLPREDNISOLONE. [Suspect]
     Active Substance: METHYLPREDNISOLONE
     Indication: VON WILLEBRAND^S DISEASE
     Dosage: FOR 5 DAYS
     Route: 065
  4. VINCRISTINE [Suspect]
     Active Substance: VINCRISTINE
     Indication: VON WILLEBRAND^S DISEASE
     Route: 065

REACTIONS (1)
  - Drug ineffective [Unknown]
